FAERS Safety Report 4737049-5 (Version None)
Quarter: 2005Q3

REPORT INFORMATION
  Report Type: 
  Country: None (occurrence: None)
  Receive Date: 20050808
  Receipt Date: 20050803
  Transmission Date: 20060218
  Serious: Yes (Death, Hospitalization)
  Sender: FDA-Public Use
  Company Number: JP-BRISTOL-MYERS SQUIBB COMPANY-13065834

PATIENT
  Age: 28 Year
  Sex: Male

DRUGS (8)
  1. REYATAZ [Suspect]
     Indication: HIV INFECTION
     Route: 048
     Dates: start: 20040614, end: 20040809
  2. EPIVIR [Suspect]
     Indication: HIV INFECTION
     Route: 048
     Dates: start: 20040614, end: 20040809
  3. FILGRASTIM [Concomitant]
     Dates: start: 20040401, end: 20041109
  4. FLUCONAZOLE [Concomitant]
     Dates: start: 20040401, end: 20041109
  5. PENTAZOCINE LACTATE [Concomitant]
     Dates: start: 20040810, end: 20040814
  6. BAKTAR [Concomitant]
     Route: 048
     Dates: start: 20040815, end: 20040913
  7. ZIAGEN [Suspect]
     Indication: HIV INFECTION
     Route: 048
     Dates: start: 20040614, end: 20040809
  8. VIREAD [Suspect]
     Indication: HIV INFECTION
     Route: 048
     Dates: start: 20040614, end: 20040809

REACTIONS (4)
  - DEATH [None]
  - PLATELET COUNT DECREASED [None]
  - PNEUMOCYSTIS JIROVECI PNEUMONIA [None]
  - WHITE BLOOD CELL COUNT DECREASED [None]
